FAERS Safety Report 18735492 (Version 4)
Quarter: 2021Q3

REPORT INFORMATION
  Report Type: Spontaneous
  Country: US (occurrence: US)
  Receive Date: 20210113
  Receipt Date: 20210928
  Transmission Date: 20211014
  Serious: Yes (Other)
  Sender: FDA-Public Use
  Company Number: US-PFIZER INC-2021013998

PATIENT
  Age: 73 Year
  Sex: Female
  Weight: 58.97 kg

DRUGS (4)
  1. NARDIL [Suspect]
     Active Substance: PHENELZINE SULFATE
     Indication: DEPRESSION
     Dosage: 90 MG, DAILY (90MG EVERY NIGHT)
     Route: 048
  2. DEPLIN [Concomitant]
     Active Substance: LEVOMEFOLATE CALCIUM
     Indication: DEPRESSION
     Dosage: UNK, 1X/DAY
     Route: 048
  3. LIOTHYRONINE SODIUM. [Concomitant]
     Active Substance: LIOTHYRONINE SODIUM
     Indication: THYROID DISORDER
     Dosage: 25 UG, DAILY (5MCG EVERY MORNING)
     Route: 048
  4. LEVOTHYROXINE SODIUM. [Concomitant]
     Active Substance: LEVOTHYROXINE SODIUM
     Indication: THYROID DISORDER
     Dosage: 25 UG, 1X/DAY (25 MCG ONCE A DAY)
     Route: 048

REACTIONS (4)
  - Somnolence [Unknown]
  - Weight increased [Unknown]
  - Hypertensive crisis [Recovering/Resolving]
  - Food interaction [Unknown]
